FAERS Safety Report 13192804 (Version 2)
Quarter: 2017Q1

REPORT INFORMATION
  Report Type: Report from Study
  Country: CN (occurrence: CN)
  Receive Date: 20170207
  Receipt Date: 20170314
  Transmission Date: 20170428
  Serious: Yes (Other)
  Sender: FDA-Public Use
  Company Number: CN-ASTRAZENECA-2017SE02608

PATIENT
  Age: 23466 Day
  Sex: Male
  Weight: 62 kg

DRUGS (6)
  1. TAGRISSO [Suspect]
     Active Substance: OSIMERTINIB
     Indication: NON-SMALL CELL LUNG CANCER METASTATIC
     Route: 048
  2. PHOSPHATIDYL CHOLINE [Concomitant]
     Active Substance: LECITHIN
     Route: 042
     Dates: start: 20161222, end: 20161228
  3. CHINESE TRADITIONAL MEDICINE NOS [Concomitant]
     Route: 042
     Dates: start: 20161224, end: 20161228
  4. TAGRISSO [Suspect]
     Active Substance: OSIMERTINIB
     Indication: NON-SMALL CELL LUNG CANCER METASTATIC
     Route: 048
     Dates: start: 20160511, end: 20161208
  5. GLYCYRRHIZIC ACID, AMMONIUM SALT [Concomitant]
     Route: 042
     Dates: start: 20161222, end: 20161228
  6. POTASSIUM CITRATE. [Concomitant]
     Active Substance: POTASSIUM CITRATE
     Route: 042
     Dates: start: 20161220, end: 20161228

REACTIONS (1)
  - Drug-induced liver injury [Not Recovered/Not Resolved]

NARRATIVE: CASE EVENT DATE: 20161228
